FAERS Safety Report 6640219-2 (Version None)
Quarter: 2010Q1

REPORT INFORMATION
  Report Type: 
  Country: None (occurrence: None)
  Receive Date: 20100315
  Receipt Date: 20100303
  Transmission Date: 20100710
  Serious: Yes (Other)
  Sender: FDA-Public Use
  Company Number: 008285

PATIENT
  Age: 24 Month

DRUGS (2)
  1. KEPPRA [Suspect]
     Indication: ENCEPHALITIS
     Dosage: (ORAL)
     Route: 048
  2. KEPPRA [Suspect]
     Indication: STATUS EPILEPTICUS
     Dosage: (ORAL)
     Route: 048

REACTIONS (2)
  - HALLUCINATION [None]
  - PANIC ATTACK [None]
